APPROVED DRUG PRODUCT: BENYLIN
Active Ingredient: DIPHENHYDRAMINE HYDROCHLORIDE; PSEUDOEPHEDRINE HYDROCHLORIDE
Strength: 12.5MG/5ML;30MG/5ML
Dosage Form/Route: SOLUTION;ORAL
Application: N019014 | Product #001
Applicant: PARKE DAVIS DIV WARNER LAMBERT CO
Approved: Jun 11, 1985 | RLD: No | RS: No | Type: DISCN